FAERS Safety Report 25258208 (Version 3)
Quarter: 2025Q2

REPORT INFORMATION
  Report Type: Spontaneous
  Country: US (occurrence: US)
  Receive Date: 20250501
  Receipt Date: 20250527
  Transmission Date: 20250716
  Serious: No
  Sender: BAUSCH AND LOMB
  Company Number: US-BAUSCHBL-2025BNL007137

PATIENT
  Age: 82 Year
  Sex: Female

DRUGS (7)
  1. PROLENSA [Suspect]
     Active Substance: BROMFENAC SODIUM
     Indication: Cystoid macular oedema
     Route: 047
     Dates: start: 202501
  2. PROLENSA [Suspect]
     Active Substance: BROMFENAC SODIUM
     Indication: Product use in unapproved indication
  3. BROMFENAC [Suspect]
     Active Substance: BROMFENAC
     Indication: Cystoid macular oedema
     Route: 047
     Dates: start: 2017
  4. BROMFENAC [Suspect]
     Active Substance: BROMFENAC
     Indication: Product use in unapproved indication
  5. LOTEMAX [Suspect]
     Active Substance: LOTEPREDNOL ETABONATE
     Indication: Product used for unknown indication
     Route: 065
  6. SYNTHROID [Concomitant]
     Active Substance: LEVOTHYROXINE SODIUM
     Indication: Product used for unknown indication
     Route: 065
  7. ACTONEL 35mg [Concomitant]
     Indication: Product used for unknown indication
     Route: 065

REACTIONS (6)
  - Eye irritation [Unknown]
  - Eye inflammation [Unknown]
  - Therapeutic product effect variable [Unknown]
  - Product use in unapproved indication [Unknown]
  - Product colour issue [Unknown]
  - Intentional product use issue [Unknown]
